FAERS Safety Report 7326440-9 (Version None)
Quarter: 2011Q1

REPORT INFORMATION
  Report Type: 
  Country: None (occurrence: None)
  Receive Date: 20110223
  Receipt Date: 20110208
  Transmission Date: 20110831
  Serious: Yes (Hospitalization)
  Sender: FDA-Public Use
  Company Number: TPA2011A00526

PATIENT
  Age: 56 Year
  Sex: Male

DRUGS (5)
  1. JANUVIA [Suspect]
  2. LANTUS [Suspect]
     Indication: TYPE 2 DIABETES MELLITUS
     Dosage: 25 IU, DAILY, SUBCUTANEOUS
     Route: 058
  3. GLYBURIDE [Suspect]
  4. ACTOS [Suspect]
  5. NOVOLOG [Suspect]

REACTIONS (5)
  - SKIN ULCER [None]
  - TREMOR [None]
  - BACTERIAL INFECTION [None]
  - BLOOD GLUCOSE DECREASED [None]
  - HYPERHIDROSIS [None]
